FAERS Safety Report 14922802 (Version 1)
Quarter: 2018Q2

REPORT INFORMATION
  Report Type: Spontaneous
  Country: FR (occurrence: FR)
  Receive Date: 20180522
  Receipt Date: 20180522
  Transmission Date: 20180711
  Serious: Yes (Other)
  Sender: FDA-Public Use
  Company Number: FR-MERCK KGAA-2048220

PATIENT
  Age: 66 Year
  Sex: Female

DRUGS (1)
  1. NOVOTHYROX [Suspect]
     Active Substance: LEVOTHYROXINE SODIUM
     Indication: HYPOTHYROIDISM
     Dates: start: 201706

REACTIONS (29)
  - Personal relationship issue [None]
  - Blood pressure increased [Recovered/Resolved]
  - Insomnia [Recovered/Resolved]
  - Muscle spasms [Not Recovered/Not Resolved]
  - Loss of libido [Recovered/Resolved]
  - Mood swings [Recovered/Resolved]
  - Hyperhidrosis [Recovered/Resolved]
  - Dizziness [Recovered/Resolved]
  - Amnesia [Recovered/Resolved]
  - Anger [Recovered/Resolved]
  - Alopecia [Recovered/Resolved]
  - Nausea [Recovered/Resolved]
  - Fatigue [Recovering/Resolving]
  - Abdominal pain [Recovered/Resolved]
  - Epigastric discomfort [Recovered/Resolved]
  - Nail disorder [Recovered/Resolved]
  - Anxiety [Recovered/Resolved]
  - Vitamin D decreased [Recovered/Resolved]
  - Hot flush [Recovered/Resolved]
  - Myalgia [Not Recovered/Not Resolved]
  - Arthralgia [Recovered/Resolved]
  - Blood thyroid stimulating hormone increased [Recovered/Resolved]
  - Negative thoughts [Recovered/Resolved]
  - Decreased interest [Recovered/Resolved]
  - Blood cholesterol increased [Recovered/Resolved]
  - Diarrhoea [Recovered/Resolved]
  - Hair disorder [Recovered/Resolved]
  - Asthenia [Recovered/Resolved]
  - Emotional distress [Recovered/Resolved]

NARRATIVE: CASE EVENT DATE: 2017
